FAERS Safety Report 25600592 (Version 1)
Quarter: 2025Q3

REPORT INFORMATION
  Report Type: Spontaneous
  Country: EU (occurrence: EU)
  Receive Date: 20250724
  Receipt Date: 20250724
  Transmission Date: 20251021
  Serious: Yes (Other)
  Sender: CELLTRION
  Company Number: EU-ECOLAB-IT-2025-0030

PATIENT

DRUGS (4)
  1. BEVACIZUMAB [Suspect]
     Active Substance: BEVACIZUMAB
     Indication: Product used for unknown indication
  2. POVIDONE-IODINE [Suspect]
     Active Substance: POVIDONE-IODINE
     Indication: Infection prophylaxis
     Route: 061
  3. LIDOCAINE HYDROCHLORIDE [Suspect]
     Active Substance: LIDOCAINE HYDROCHLORIDE
     Indication: Product used for unknown indication
  4. BENOXINATE HYDROCHLORIDE [Suspect]
     Active Substance: BENOXINATE HYDROCHLORIDE
     Indication: Product used for unknown indication

REACTIONS (3)
  - Dermatitis contact [Recovered/Resolved]
  - Hyperaemia [Recovered/Resolved]
  - Conjunctival disorder [Recovered/Resolved]
